FAERS Safety Report 7676889-X (Version None)
Quarter: 2011Q3

REPORT INFORMATION
  Report Type: 
  Country: None (occurrence: None)
  Receive Date: 20110811
  Receipt Date: 20110803
  Transmission Date: 20111222
  Serious: Yes (Hospitalization)
  Sender: FDA-Public Use
  Company Number: PHEH2011US00667

PATIENT
  Sex: Female
  Weight: 69.57 kg

DRUGS (1)
  1. EXJADE [Suspect]
     Indication: THALASSAEMIA
     Dosage: 1000 MG, QD
     Route: 048
     Dates: start: 20090901

REACTIONS (2)
  - WHITE BLOOD CELL COUNT INCREASED [None]
  - CYSTITIS [None]
